FAERS Safety Report 7241719-7 (Version None)
Quarter: 2011Q1

REPORT INFORMATION
  Report Type: 
  Country: None (occurrence: None)
  Receive Date: 20110124
  Receipt Date: 20110117
  Transmission Date: 20110831
  Serious: Yes (Hospitalization, Other)
  Sender: FDA-Public Use
  Company Number: PHHY2010US76915

PATIENT
  Sex: Female

DRUGS (9)
  1. ASPIRIN [Concomitant]
  2. EXTAVIA [Suspect]
     Dosage: 0.25 MG, QOD
     Route: 058
     Dates: start: 20100713
  3. PREMARIN [Concomitant]
  4. ZOCOR [Concomitant]
  5. PRILOSEC [Concomitant]
  6. EXTAVIA [Suspect]
     Indication: MULTIPLE SCLEROSIS
     Dosage: UNK , QOD
     Route: 058
     Dates: start: 20100713
  7. ATENOLOL [Concomitant]
  8. SYNTHROID [Concomitant]
  9. VITAMIN D [Concomitant]

REACTIONS (3)
  - PNEUMONIA [None]
  - BLOOD SMEAR TEST ABNORMAL [None]
  - THYROID FUNCTION TEST ABNORMAL [None]
